FAERS Safety Report 19084516 (Version 1)
Quarter: 2021Q2

REPORT INFORMATION
  Report Type: Report from Study
  Country: CA (occurrence: CA)
  Receive Date: 20210401
  Receipt Date: 20210401
  Transmission Date: 20210717
  Serious: Yes (Death, Hospitalization, Other)
  Sender: FDA-Public Use
  Company Number: CA-MYLANLABS-2020M1100500

PATIENT
  Age: 74 Year
  Sex: Female

DRUGS (25)
  1. TOPIRAMATE. [Suspect]
     Active Substance: TOPIRAMATE
     Indication: PRODUCT USED FOR UNKNOWN INDICATION
     Dosage: UNK, QD (1 (ONE) TABLET(S), ONCE DAILY X 90 DAY(S) )
     Route: 048
     Dates: start: 20201023
  2. PATANOL [Suspect]
     Active Substance: OLOPATADINE HYDROCHLORIDE
     Indication: PRODUCT USED FOR UNKNOWN INDICATION
     Dosage: UNK, BID (1 (ONE) DROP(S), TWO TIMES DAILY X 10 DAY(S) )
     Route: 047
     Dates: start: 20200702, end: 20200722
  3. METOPROLOL. [Suspect]
     Active Substance: METOPROLOL
     Indication: PRODUCT USED FOR UNKNOWN INDICATION
     Dosage: UNK, BID (1 TABLET TWO TIME DAILY X 90 DAYS)
     Route: 048
     Dates: start: 20201023
  4. ENSURE [Suspect]
     Active Substance: AMINO ACIDS\DEXTROSE\ELECTROLYTES NOS\SOYBEAN OIL\VITAMINS
     Indication: PRODUCT USED FOR UNKNOWN INDICATION
     Dosage: UNK, PRN (1 (ONE) BOTTLE, THREE TIMES DAILY PRN X 10 DAY(S) )
     Route: 048
     Dates: start: 20201112
  5. SYNTHROID [Suspect]
     Active Substance: LEVOTHYROXINE SODIUM
     Indication: PRODUCT USED FOR UNKNOWN INDICATION
     Dosage: UNK UNK, QD (1 (ONE) TABLET(S), ONCE DAILY X 90 DAY(S) )
     Route: 048
     Dates: start: 20201023
  6. CLOPIDOGREL BISULFATE. [Suspect]
     Active Substance: CLOPIDOGREL BISULFATE
     Indication: PRODUCT USED FOR UNKNOWN INDICATION
     Dosage: UNK, QD (1(ONE) TABLET(S), ONCE DAILY X 90 DAY(S) )
     Route: 048
     Dates: start: 20201023
  7. PANTOLOC                           /01263201/ [Suspect]
     Active Substance: PANTOPRAZOLE SODIUM
     Indication: PRODUCT USED FOR UNKNOWN INDICATION
     Dosage: UNK (1 (ONE) TABLET(S), ONCE DAILY X 90 DAY(S) )
     Route: 048
     Dates: start: 20201023
  8. AMLODIPINE [Suspect]
     Active Substance: AMLODIPINE BESYLATE
     Indication: PRODUCT USED FOR UNKNOWN INDICATION
     Dosage: UNK UNK, QD (1 TABLET ONCE DAILY X 90 DAYS)
     Route: 048
     Dates: start: 20201023
  9. IRBESARTAN. [Suspect]
     Active Substance: IRBESARTAN
     Indication: PRODUCT USED FOR UNKNOWN INDICATION
     Dosage: UNK, QD (1 (ONE) TABLET(S), ONCE DAILY X 9 DAY(S) )
     Route: 048
     Dates: start: 20201023
  10. ATORVASTATIN [Suspect]
     Active Substance: ATORVASTATIN
     Indication: PRODUCT USED FOR UNKNOWN INDICATION
     Dosage: UNK, QD (1 (ONE) TABLET(S), EVERY DAY AT BEDTIME X 90 DAY(S) )
     Route: 048
     Dates: start: 20201023
  11. APOCAL [Suspect]
     Active Substance: CALCIUM CARBONATE
     Indication: PRODUCT USED FOR UNKNOWN INDICATION
     Dosage: UNK UNK, QD (1 TABLET ONCE DAILY X 90 DAYS)
     Route: 048
     Dates: start: 20201023
  12. ZOPICLONE [Suspect]
     Active Substance: ZOPICLONE
     Indication: PRODUCT USED FOR UNKNOWN INDICATION
     Dosage: UNK UNK, QD (1 TABLET EVERY DAY AT BEDTIME X 30 DAYS)
     Route: 048
     Dates: start: 20200304, end: 20200403
  13. MACROBID [Suspect]
     Active Substance: NITROFURANTOIN\NITROFURANTOIN MONOHYDRATE
     Indication: PRODUCT USED FOR UNKNOWN INDICATION
     Dosage: UNK UNK, BID (1 ONE CAPSULE TWO TIMES DAILY X 5 DAYS)
     Route: 048
     Dates: start: 20201014, end: 20201019
  14. MS?IR (MORPHINE SULFATE) [Suspect]
     Active Substance: MORPHINE SULFATE
     Indication: PRODUCT USED FOR UNKNOWN INDICATION
     Dosage: UNK, QID (0.5 TABLET(S), FOUR TIMES DAILY X 30 DAY(S) )
     Route: 048
  15. DULCOLAX (BISACODYL) [Suspect]
     Active Substance: BISACODYL
     Indication: PRODUCT USED FOR UNKNOWN INDICATION
     Dosage: UNK UNK, PRN (1 (ONE) SUPPOSITORIES, EVERY EVENING PRN X 30 DAY(S) )
     Route: 054
     Dates: start: 20200923, end: 20201023
  16. GLUCERNA [Suspect]
     Active Substance: AMINO ACIDS\DEXTROSE\ELECTROLYTES NOS\SOYBEAN OIL\VITAMINS
     Indication: PRODUCT USED FOR UNKNOWN INDICATION
     Dosage: UNK, BID (1 (ONE) BOTTLE, TWO TIMES DAILY X 90 DAY(S) )
     Route: 048
     Dates: start: 20190415, end: 20190714
  17. SENNOSIDE                          /00571901/ [Suspect]
     Active Substance: SENNOSIDES A AND B
     Indication: PRODUCT USED FOR UNKNOWN INDICATION
     Dosage: UNK, QD (2 (TWO) TABLET(S), EVERY DAY AT BEDTIME X 90 DAY(S) )
     Route: 048
     Dates: start: 20200408, end: 20200707
  18. CLOZAPINE. [Suspect]
     Active Substance: CLOZAPINE
     Indication: PRODUCT USED FOR UNKNOWN INDICATION
     Dosage: UNK
     Dates: start: 199610
  19. CLOZAPINE. [Suspect]
     Active Substance: CLOZAPINE
     Dosage: UNK UNK, QD (2 (TWO) TABLET(S), EVERY DAY AT BEDTIME X90 DAY(S))
     Route: 048
     Dates: start: 20201023
  20. SALBUTAMOL SULFATE [Suspect]
     Active Substance: ALBUTEROL SULFATE
     Indication: PRODUCT USED FOR UNKNOWN INDICATION
     Dosage: UNK, PRN (2 (TWO) SPRAY(S), EVERY 4 HOURS PRN X 2 MTH30 )
     Dates: start: 20200923, end: 20201122
  21. VITA B12 /00091803/ [Suspect]
     Active Substance: HYDROXOCOBALAMIN ACETATE
     Indication: PRODUCT USED FOR UNKNOWN INDICATION
     Dosage: UNK, QD (1 (ONE) TABLET(S), ONCE DAILY X 90 DAY(S) )
     Route: 048
     Dates: start: 20201023
  22. VITAMIN D                          /00107901/ [Suspect]
     Active Substance: ERGOCALCIFEROL
     Indication: PRODUCT USED FOR UNKNOWN INDICATION
     Dosage: UNK UNK, QD (2 (TWO) TABLET(S), ONCE DAILY X 90 DAY(S) )
     Route: 048
     Dates: start: 20201023
  23. TYLENOL WITH CODEINE [Suspect]
     Active Substance: ACETAMINOPHEN\CODEINE PHOSPHATE
     Indication: PRODUCT USED FOR UNKNOWN INDICATION
     Dosage: UNK, PRN (1 (ONE) ? 2 (TWO) TABLET(S), FOUR TIMES DAILY PRN X 10 DAY(S) )
     Route: 048
     Dates: start: 20200922, end: 20201002
  24. DILAUDID [Suspect]
     Active Substance: HYDROMORPHONE HYDROCHLORIDE
     Indication: PRODUCT USED FOR UNKNOWN INDICATION
     Dosage: UNK UNK, Q4H (3 (THREE) TABLET(S), EVERY 4 HOURS X 30 DAY(S) )
     Route: 048
     Dates: start: 20201030, end: 20201129
  25. FERROUS SULFATE. [Suspect]
     Active Substance: FERROUS SULFATE
     Indication: PRODUCT USED FOR UNKNOWN INDICATION
     Dosage: UNK UNK, QD (1 (ONE) TABLET(S), ONCE DAILY X 90 DAY(S) )
     Route: 048
     Dates: start: 20201023

REACTIONS (1)
  - Death [Fatal]

NARRATIVE: CASE EVENT DATE: 20201129
